FAERS Safety Report 12403069 (Version 1)
Quarter: 2016Q2

REPORT INFORMATION
  Report Type: Spontaneous
  Country: US (occurrence: US)
  Receive Date: 20160525
  Receipt Date: 20160525
  Transmission Date: 20160815
  Serious: Yes (Other)
  Sender: FDA-Public Use
  Company Number: US-CIPLA LTD.-2016US05079

PATIENT

DRUGS (2)
  1. PROFILNINE [Suspect]
     Active Substance: FACTOR IX COMPLEX
     Dosage: 50 IU/KG (3420 UNITS)
     Route: 065
  2. WARFARIN [Suspect]
     Active Substance: WARFARIN
     Dosage: UNK
     Route: 065

REACTIONS (3)
  - Intracardiac thrombus [Unknown]
  - International normalised ratio increased [Unknown]
  - Prothrombin time prolonged [Unknown]
